FAERS Safety Report 7610555-1 (Version None)
Quarter: 2011Q3

REPORT INFORMATION
  Report Type: 
  Country: None (occurrence: None)
  Receive Date: 20110715
  Receipt Date: 20110322
  Transmission Date: 20111222
  Serious: Yes (Hospitalization, Other)
  Sender: FDA-Public Use
  Company Number: US-BAYER-2010-001229

PATIENT
  Age: 16 Year
  Sex: Female
  Weight: 72.562 kg

DRUGS (1)
  1. YAZ [Suspect]
     Indication: ACNE
     Dosage: UNK

REACTIONS (6)
  - GALLBLADDER DISORDER [None]
  - DIARRHOEA [None]
  - JAUNDICE [None]
  - GALLBLADDER INJURY [None]
  - DEPRESSION [None]
  - CHOLECYSTITIS [None]
